FAERS Safety Report 21302331 (Version 1)
Quarter: 2022Q3

REPORT INFORMATION
  Report Type: Report from Study
  Country: AR (occurrence: AR)
  Receive Date: 20220907
  Receipt Date: 20220907
  Transmission Date: 20221027
  Serious: Yes (Other)
  Sender: FDA-Public Use
  Company Number: AR-ABBVIE-22K-007-4530122-00

PATIENT
  Age: 76 Year
  Sex: Female

DRUGS (1)
  1. HUMIRA [Suspect]
     Active Substance: ADALIMUMAB
     Indication: Crohn^s disease
     Route: 058
     Dates: start: 20220818

REACTIONS (8)
  - Stoma site haemorrhage [Unknown]
  - Fatigue [Not Recovered/Not Resolved]
  - Limb injury [Not Recovered/Not Resolved]
  - Gastritis [Recovered/Resolved]
  - Stoma site ulcer [Unknown]
  - Neck pain [Recovering/Resolving]
  - Crohn^s disease [Unknown]
  - Headache [Recovering/Resolving]

NARRATIVE: CASE EVENT DATE: 20220902
